FAERS Safety Report 4575633-2 (Version None)
Quarter: 2005Q1

REPORT INFORMATION
  Report Type: 
  Country: None (occurrence: None)
  Receive Date: 20050209
  Receipt Date: 20050128
  Transmission Date: 20050727
  Serious: Yes (Hospitalization)
  Sender: FDA-Public Use
  Company Number: AU-GLAXOSMITHKLINE-B0369929A

PATIENT
  Age: 41 Year
  Sex: Female

DRUGS (4)
  1. IMIGRAN [Suspect]
     Indication: ILL-DEFINED DISORDER
     Dosage: 6MG SINGLE DOSE
     Route: 058
  2. OGEN [Concomitant]
     Indication: ILL-DEFINED DISORDER
     Dosage: 1.2MG SINGLE DOSE
     Route: 048
  3. MODURETIC 5-50 [Concomitant]
     Indication: ILL-DEFINED DISORDER
     Dosage: 1U PER DAY
     Route: 048
  4. GRANOCOL [Concomitant]
     Indication: ILL-DEFINED DISORDER
     Route: 048

REACTIONS (5)
  - ABDOMINAL PAIN [None]
  - CHEST PAIN [None]
  - HEADACHE [None]
  - HYPERTONIA [None]
  - PALPITATIONS [None]
